FAERS Safety Report 10188941 (Version 1)
Quarter: 2014Q2

REPORT INFORMATION
  Report Type: Spontaneous
  Country: US (occurrence: US)
  Receive Date: 20140522
  Receipt Date: 20140522
  Transmission Date: 20141212
  Serious: No
  Sender: FDA-Public Use
  Company Number: US-SA-2014SA029941

PATIENT
  Age: 76 Year
  Sex: Female

DRUGS (2)
  1. LANTUS SOLOSTAR [Suspect]
     Indication: TYPE 2 DIABETES MELLITUS
     Dosage: TAKEN FROM: 1 MONTH DOSE:20 UNIT(S)
     Route: 051
  2. SOLOSTAR [Concomitant]
     Indication: TYPE 2 DIABETES MELLITUS
     Dosage: TAKEN FROM: 1 MONTH

REACTIONS (6)
  - Malaise [Unknown]
  - Dizziness [Unknown]
  - Underdose [Unknown]
  - Blood glucose increased [Unknown]
  - Crying [Unknown]
  - Drug ineffective [Unknown]
